FAERS Safety Report 10011981 (Version 1)
Quarter: 2014Q1

REPORT INFORMATION
  Report Type: Spontaneous
  Country: US (occurrence: US)
  Receive Date: 20140314
  Receipt Date: 20140314
  Transmission Date: 20141002
  Serious: Yes (Death)
  Sender: FDA-Public Use
  Company Number: US-GLAXOSMITHKLINE-A1064754A

PATIENT
  Age: 34 Year
  Sex: Male

DRUGS (5)
  1. NICOTINE [Suspect]
     Indication: SMOKING CESSATION THERAPY
     Route: 062
     Dates: start: 201311
  2. NICODERM CQ 21MG [Suspect]
     Indication: SMOKING CESSATION THERAPY
     Route: 062
     Dates: start: 201312, end: 201312
  3. LEXAPRO [Concomitant]
  4. BUSPIRONE [Concomitant]
  5. UNKNOWN [Concomitant]

REACTIONS (2)
  - Overdose [Fatal]
  - Drug ineffective [Unknown]
